FAERS Safety Report 8953293 (Version 1)
Quarter: 2012Q4

REPORT INFORMATION
  Report Type: 
  Country: US (occurrence: US)
  Receive Date: 20121206
  Receipt Date: 20121206
  Transmission Date: 20130627
  Serious: No
  Sender: FDA-Public Use
  Company Number: US-009507513-1212USA000903

PATIENT
  Age: 28 Year
  Sex: Female

DRUGS (4)
  1. SAPHRIS [Suspect]
     Indication: BIPOLAR I DISORDER
     Dosage: Rapid dissolve,unspecified flavor
     Route: 060
  2. ZOLOFT [Concomitant]
  3. VALIUM [Concomitant]
  4. LITHIUM [Concomitant]

REACTIONS (1)
  - Weight increased [Recovering/Resolving]
